FAERS Safety Report 6085451-4 (Version None)
Quarter: 2009Q1

REPORT INFORMATION
  Report Type: 
  Country: None (occurrence: None)
  Receive Date: 20090220
  Receipt Date: 20090210
  Transmission Date: 20090719
  Serious: Yes (Hospitalization)
  Sender: FDA-Public Use
  Company Number: US-AVENTIS-200911098US

PATIENT
  Age: 68 Year
  Sex: Male

DRUGS (2)
  1. LOVENOX [Suspect]
     Route: 051
  2. TARCEVA                            /01611401/ [Concomitant]
     Dosage: DOSE: UNK

REACTIONS (6)
  - CHEST PAIN [None]
  - DIZZINESS [None]
  - DYSPNOEA [None]
  - LUNG NEOPLASM MALIGNANT [None]
  - METASTASIS [None]
  - VISUAL FIELD DEFECT [None]
